FAERS Safety Report 5597940-7 (Version None)
Quarter: 2008Q1

REPORT INFORMATION
  Report Type: 
  Country: None (occurrence: None)
  Receive Date: 20080116
  Receipt Date: 20080107
  Transmission Date: 20080703
  Serious: Yes (Other)
  Sender: FDA-Public Use
  Company Number: 2008000490

PATIENT
  Age: 14 Month
  Sex: Female

DRUGS (1)
  1. SUDAFED S.A. [Suspect]
     Dosage: 30 MG, ONE TEASPOON ONCE (1 IN 1 D), ORAL
     Route: 048
     Dates: start: 20040614, end: 20040614

REACTIONS (3)
  - DRUG DISPENSING ERROR [None]
  - HYPOTONIA [None]
  - WRONG DRUG ADMINISTERED [None]
